FAERS Safety Report 8047213-8 (Version None)
Quarter: 2012Q1

REPORT INFORMATION
  Report Type: 
  Country: None (occurrence: None)
  Receive Date: 20120116
  Receipt Date: 20120106
  Transmission Date: 20120608
  Serious: Yes (Disabling)
  Sender: FDA-Public Use
  Company Number: JP-ASTELLAS-2012JP000217

PATIENT
  Age: 45 Year
  Sex: Male
  Weight: 64 kg

DRUGS (8)
  1. IMURAN [Concomitant]
     Dosage: 50 MG, UNKNOWN/D
     Route: 048
     Dates: start: 20111116
  2. IMURAN [Concomitant]
     Indication: COLITIS ULCERATIVE
     Dosage: 100 MG, UNKNOWN/D
     Route: 048
     Dates: start: 20110530
  3. TACROLIMUS [Suspect]
     Indication: COLITIS ULCERATIVE
     Dosage: 1.5 MG, BID
     Route: 048
     Dates: start: 20110519, end: 20110525
  4. TACROLIMUS [Suspect]
     Dosage: 3 MG, BID
     Route: 048
     Dates: start: 20110513, end: 20110519
  5. ANTIBIOTICS [Suspect]
     Route: 065
  6. TPN [Suspect]
     Route: 041
  7. PENTASA [Concomitant]
     Indication: COLITIS ULCERATIVE
     Dosage: 4000 MG, UNKNOWN/D
     Route: 048
     Dates: start: 20110513
  8. TACROLIMUS [Suspect]
     Dosage: 1 MG, UNKNOWN/D
     Route: 048
     Dates: start: 20110525, end: 20110613

REACTIONS (2)
  - RENAL DISORDER [None]
  - LIVER DISORDER [None]
